FAERS Safety Report 8812390 (Version 1)
Quarter: 2012Q4

REPORT INFORMATION
  Report Type: 
  Country: US (occurrence: US)
  Receive Date: 20120927
  Receipt Date: 20120927
  Transmission Date: 20130627
  Serious: No
  Sender: FDA-Public Use
  Company Number: US-ASTRAZENECA-2012SE70458

PATIENT
  Age: 43 Year
  Sex: Female
  Weight: 55.3 kg

DRUGS (8)
  1. TOPROL XL [Suspect]
     Indication: SUPRAVENTRICULAR TACHYCARDIA
     Route: 048
     Dates: start: 2005, end: 201106
  2. TOPROL XL [Suspect]
     Indication: ARRHYTHMIA
     Route: 048
     Dates: start: 2005, end: 201106
  3. TOPROL XL [Suspect]
     Indication: SUPRAVENTRICULAR TACHYCARDIA
     Route: 048
  4. TOPROL XL [Suspect]
     Indication: ARRHYTHMIA
     Route: 048
  5. TOPROL XL [Suspect]
     Indication: SUPRAVENTRICULAR TACHYCARDIA
     Route: 048
  6. TOPROL XL [Suspect]
     Indication: ARRHYTHMIA
     Route: 048
  7. TOPROL XL [Suspect]
     Indication: SUPRAVENTRICULAR TACHYCARDIA
     Route: 048
     Dates: start: 201108, end: 20110927
  8. TOPROL XL [Suspect]
     Indication: ARRHYTHMIA
     Route: 048
     Dates: start: 201108, end: 20110927

REACTIONS (6)
  - Feeling abnormal [Unknown]
  - Gastrointestinal disorder [Unknown]
  - Myalgia [Unknown]
  - Burning sensation [Not Recovered/Not Resolved]
  - Fatigue [Unknown]
  - Alopecia [Not Recovered/Not Resolved]
